FAERS Safety Report 8812446 (Version 1)
Quarter: 2012Q4

REPORT INFORMATION
  Report Type: 
  Country: US (occurrence: US)
  Receive Date: 20120927
  Receipt Date: 20120927
  Transmission Date: 20130627
  Serious: Yes (Hospitalization)
  Sender: FDA-Public Use
  Company Number: US-ASTRAZENECA-2012SE72927

PATIENT
  Age: 75 Year
  Sex: Female

DRUGS (1)
  1. NEXIUM [Suspect]
     Route: 048

REACTIONS (8)
  - Vocal cord disorder [Unknown]
  - Oesophageal disorder [Unknown]
  - Malaise [Unknown]
  - Dyspepsia [Unknown]
  - Asthma [Unknown]
  - Regurgitation [Unknown]
  - Cough [Unknown]
  - Drug dose omission [Unknown]
